FAERS Safety Report 4848113-4 (Version None)
Quarter: 2005Q4

REPORT INFORMATION
  Report Type: 
  Country: None (occurrence: None)
  Receive Date: 20051206
  Receipt Date: 20051206
  Transmission Date: 20060501
  Serious: No
  Sender: FDA-Public Use
  Company Number: None

PATIENT
  Sex: Female

DRUGS (1)
  1. TOPAMAX [Suspect]
     Indication: MOOD ALTERED
     Dosage: 400MG ORAL
     Route: 048
     Dates: start: 20020401, end: 20031001

REACTIONS (1)
  - COLOUR BLINDNESS [None]
